FAERS Safety Report 4570632-9 (Version None)
Quarter: 2005Q1

REPORT INFORMATION
  Report Type: 
  Country: None (occurrence: None)
  Receive Date: 20050202
  Receipt Date: 20050113
  Transmission Date: 20050727
  Serious: Yes (Other)
  Sender: FDA-Public Use
  Company Number: DE_050115010

PATIENT
  Age: 50 Year
  Sex: Male

DRUGS (2)
  1. GEMZAR [Suspect]
     Indication: NON-SMALL CELL LUNG CANCER
     Dates: start: 20041101, end: 20040101
  2. DEXAMETHASONE [Concomitant]

REACTIONS (7)
  - AORTIC VALVE INCOMPETENCE [None]
  - ASTHENIA [None]
  - BLOOD GLUCOSE INCREASED [None]
  - FATIGUE [None]
  - LEUKOCYTOSIS [None]
  - RADIATION PNEUMONITIS [None]
  - RECALL PHENOMENON [None]
